FAERS Safety Report 9180008 (Version 2)
Quarter: 2013Q1

REPORT INFORMATION
  Report Type: Report from Study
  Country: DE (occurrence: DE)
  Receive Date: 20130321
  Receipt Date: 20130328
  Transmission Date: 20140127
  Serious: Yes (Hospitalization, Other)
  Sender: FDA-Public Use
  Company Number: DE-TEVA-393169GER

PATIENT
  Age: 54 None
  Sex: Female
  Weight: 65 kg

DRUGS (6)
  1. MYOCET [Suspect]
     Indication: BREAST CANCER
     Route: 042
     Dates: start: 20121005, end: 20130301
  2. PACLITAXEL [Suspect]
     Indication: BREAST CANCER
     Route: 042
     Dates: start: 20121005, end: 20130301
  3. CARBOPLATIN [Suspect]
     Indication: BREAST CANCER
     Route: 042
  4. BEVACIZUMAB [Suspect]
     Indication: BREAST CANCER
     Route: 042
     Dates: start: 20121005, end: 20130215
  5. L-THYROXIN [Concomitant]
     Dosage: 100 MICROGRAM DAILY;
     Dates: start: 2002
  6. PANTOZOL 40 [Concomitant]
     Dosage: 80 MILLIGRAM DAILY;
     Dates: start: 20121109

REACTIONS (4)
  - Pneumonia [Recovered/Resolved]
  - Infection [Recovered/Resolved]
  - Fatigue [Unknown]
  - Depression [Unknown]
